FAERS Safety Report 9135703 (Version 1)
Quarter: 2013Q1

REPORT INFORMATION
  Report Type: Spontaneous
  Country: US (occurrence: None)
  Receive Date: 20130227
  Receipt Date: 20130227
  Transmission Date: 20140127
  Serious: Yes (Death)
  Sender: FDA-Public Use
  Company Number: AUR-APL-2013-00449

PATIENT
  Age: 68 Year
  Sex: Female

DRUGS (4)
  1. CYCLOBENZAPRINE [Suspect]
     Indication: PRODUCT USED FOR UNKNOWN INDICATION
  2. FENTANYL (FENTANYL) [Suspect]
     Route: 048
  3. ACETAMINOPHEN\HYDROCODONE [Suspect]
  4. VERAPAMIL [Suspect]

REACTIONS (1)
  - Drug abuse [None]
